FAERS Safety Report 5085942-9 (Version None)
Quarter: 2006Q3

REPORT INFORMATION
  Report Type: 
  Country: None (occurrence: None)
  Receive Date: 20060817
  Receipt Date: 20060803
  Transmission Date: 20061208
  Serious: Yes (Hospitalization)
  Sender: FDA-Public Use
  Company Number: 2006085967

PATIENT
  Sex: Female

DRUGS (1)
  1. CABERGOLINE [Suspect]
     Indication: PARKINSON'S DISEASE
     Dosage: ORAL
     Route: 048

REACTIONS (4)
  - CONDITION AGGRAVATED [None]
  - DRUG EFFECT DECREASED [None]
  - PARKINSON'S DISEASE [None]
  - POOR QUALITY DRUG ADMINISTERED [None]
